FAERS Safety Report 8335003-8 (Version None)
Quarter: 2012Q2

REPORT INFORMATION
  Report Type: 
  Country: None (occurrence: None)
  Receive Date: 20120503
  Receipt Date: 20120430
  Transmission Date: 20120825
  Serious: Yes (Hospitalization)
  Sender: FDA-Public Use
  Company Number: NL-AMGEN-NLDSP2012019324

PATIENT
  Age: 47 Year
  Sex: Female
  Weight: 59 kg

DRUGS (12)
  1. FLUCONAZOLE [Concomitant]
     Dosage: 200 MG, UNK
     Route: 048
     Dates: start: 20101001
  2. RITUXIMAB [Concomitant]
     Indication: DIFFUSE LARGE B-CELL LYMPHOMA
     Dosage: 611.25 MG, UNK
     Route: 042
     Dates: start: 20101001
  3. ACYCLOVIR [Concomitant]
     Indication: PROPHYLAXIS
     Dosage: 800 MG, UNK
     Route: 048
     Dates: start: 20101001
  4. METHYLPREDNISOLONE [Concomitant]
     Dosage: 500 MG, UNK
     Dates: start: 20120330
  5. DOXORUBICIN HCL [Concomitant]
     Indication: DIFFUSE LARGE B-CELL LYMPHOMA
     Dosage: 81.5 MG, UNK
     Route: 042
     Dates: start: 20101001
  6. OMEPRAZOLE [Concomitant]
     Indication: COLITIS
     Dosage: 20 MG, UNK
     Route: 048
     Dates: start: 20101008
  7. ACETAMINOPHEN [Concomitant]
     Indication: PAIN
     Dosage: 300 MG, UNK
     Route: 048
     Dates: start: 20101008
  8. MEDROL [Concomitant]
     Indication: INFECTION
     Dosage: 64 MG, UNK
     Route: 048
     Dates: start: 20101001, end: 20101013
  9. VINCRISTINE [Concomitant]
     Indication: DIFFUSE LARGE B-CELL LYMPHOMA
     Dosage: 2 MG, UNK
     Route: 042
     Dates: start: 20101001
  10. PREDNISOLONE [Concomitant]
     Indication: DIFFUSE LARGE B-CELL LYMPHOMA
     Dosage: 64 MG, UNK
     Route: 048
     Dates: start: 20101001
  11. PEGFILGRASTIM [Suspect]
     Indication: DIFFUSE LARGE B-CELL LYMPHOMA
     Dosage: 6 MG, UNK
     Route: 058
     Dates: start: 20101016
  12. CYCLOPHOSPHAMIDE [Concomitant]
     Indication: DIFFUSE LARGE B-CELL LYMPHOMA
     Dosage: 1222.5 MG, UNK
     Route: 042
     Dates: start: 20101001

REACTIONS (2)
  - POST LUMBAR PUNCTURE SYNDROME [None]
  - SUBARACHNOID HAEMORRHAGE [None]
